FAERS Safety Report 21157658 (Version 1)
Quarter: 2022Q3

REPORT INFORMATION
  Report Type: Spontaneous
  Country: US (occurrence: None)
  Receive Date: 20220731
  Receipt Date: 20220731
  Transmission Date: 20221027
  Serious: No
  Sender: FDA-Public Use
  Company Number: None

PATIENT
  Age: 40 Year
  Sex: Female

DRUGS (1)
  1. SCOPOLAMINE [Suspect]
     Active Substance: SCOPOLAMINE
     Indication: Procedural nausea
     Dosage: OTHER QUANTITY : 1 PATCH(ES);?FREQUENCY : AS NEEDED;?
     Route: 062
     Dates: start: 20220729, end: 20220730

REACTIONS (3)
  - Swelling [None]
  - Dry mouth [None]
  - Vision blurred [None]

NARRATIVE: CASE EVENT DATE: 20220730
